FAERS Safety Report 8691345 (Version 2)
Quarter: 2012Q4

REPORT INFORMATION
  Report Type: 
  Country: RU (occurrence: RU)
  Receive Date: 20120730
  Receipt Date: 20120918
  Transmission Date: 20130627
  Serious: Yes (Death)
  Sender: FDA-Public Use
  Company Number: PHHY2012RU064799

PATIENT
  Age: 8 Year
  Sex: Female

DRUGS (2)
  1. EXJADE [Suspect]
     Indication: SERUM FERRITIN INCREASED
     Dosage: 30 mg/kg
  2. EXJADE [Suspect]
     Dosage: 40 mg/kg

REACTIONS (1)
  - Haemosiderosis [Fatal]
